FAERS Safety Report 21636744 (Version 2)
Quarter: 2023Q1

REPORT INFORMATION
  Report Type: Report from Study
  Country: US (occurrence: US)
  Receive Date: 20221124
  Receipt Date: 20230207
  Transmission Date: 20230417
  Serious: Yes (Other)
  Sender: FDA-Public Use
  Company Number: US-ABBVIE-22K-163-4467769-00

PATIENT
  Age: 71 Year
  Sex: Male

DRUGS (5)
  1. IMBRUVICA [Suspect]
     Active Substance: IBRUTINIB
     Indication: Chronic lymphocytic leukaemia
     Route: 048
     Dates: end: 20220710
  2. IMBRUVICA [Suspect]
     Active Substance: IBRUTINIB
     Indication: Chronic lymphocytic leukaemia
     Dosage: 420 MILLIGRAM DAILY
     Route: 048
     Dates: start: 20170711, end: 201711
  3. IMBRUVICA [Suspect]
     Active Substance: IBRUTINIB
     Indication: Chronic lymphocytic leukaemia
     Route: 048
     Dates: start: 20171107, end: 201804
  4. IMBRUVICA [Suspect]
     Active Substance: IBRUTINIB
     Indication: Chronic lymphocytic leukaemia
     Route: 048
     Dates: start: 20180413, end: 201805
  5. IMBRUVICA [Suspect]
     Active Substance: IBRUTINIB
     Indication: Chronic lymphocytic leukaemia
     Dosage: TIME INTERVAL: 0.33333333 DAYS
     Route: 048
     Dates: start: 201706

REACTIONS (9)
  - Precancerous cells present [Unknown]
  - Dental cleaning [Unknown]
  - Memory impairment [Unknown]
  - White blood cell count increased [Unknown]
  - Irritability [Unknown]
  - COVID-19 [Unknown]
  - Tooth extraction [Unknown]
  - Anxiety [Unknown]
  - Dry skin [Unknown]

NARRATIVE: CASE EVENT DATE: 20221201
